FAERS Safety Report 21381157 (Version 1)
Quarter: 2022Q3

REPORT INFORMATION
  Report Type: Spontaneous
  Country: US (occurrence: None)
  Receive Date: 20220926
  Receipt Date: 20220926
  Transmission Date: 20221027
  Serious: Yes (unspecified)
  Sender: FDA-Public Use
  Company Number: None

PATIENT
  Age: 69 Year
  Sex: Female
  Weight: 57.15 kg

DRUGS (3)
  1. BEBTELOVIMAB [Suspect]
     Active Substance: BEBTELOVIMAB
     Indication: COVID-19
     Route: 042
  2. Armour Y [Concomitant]
  3. VITAMINS [Concomitant]
     Active Substance: VITAMINS

REACTIONS (7)
  - Hypersensitivity [None]
  - Feeling hot [None]
  - Flushing [None]
  - Dyspnoea [None]
  - Nervousness [None]
  - Hypoacusis [None]
  - Blood pressure increased [None]

NARRATIVE: CASE EVENT DATE: 20220916
